FAERS Safety Report 8814050 (Version 1)
Quarter: 2012Q4

REPORT INFORMATION
  Report Type: 
  Country: US (occurrence: US)
  Receive Date: 20120928
  Receipt Date: 20120928
  Transmission Date: 20130627
  Serious: No
  Sender: FDA-Public Use
  Company Number: US-PFIZER INC-2012236713

PATIENT
  Age: 81 Year
  Sex: Male
  Weight: 72.56 kg

DRUGS (1)
  1. DETROL LA [Suspect]
     Indication: HYPERTONIC BLADDER
     Dosage: 4 mg, 1x/day
     Dates: start: 20120907

REACTIONS (1)
  - Drug ineffective [Unknown]
